FAERS Safety Report 7616758-4 (Version None)
Quarter: 2011Q3

REPORT INFORMATION
  Report Type: 
  Country: None (occurrence: None)
  Receive Date: 20110718
  Receipt Date: 20110708
  Transmission Date: 20111222
  Serious: Yes (Hospitalization)
  Sender: FDA-Public Use
  Company Number: US-BIOGENIDEC-2011BI005554

PATIENT
  Age: 62 Year
  Sex: Male

DRUGS (4)
  1. AVONEX [Suspect]
     Route: 030
  2. BLOOD THINNING SHOT (NOS) [Concomitant]
     Indication: THROMBOSIS PROPHYLAXIS
  3. AVONEX [Suspect]
     Indication: MULTIPLE SCLEROSIS
     Route: 030
     Dates: start: 20060901
  4. AVONEX [Suspect]
     Route: 030
     Dates: start: 20090614

REACTIONS (7)
  - SKIN DISCOLOURATION [None]
  - INJURY ASSOCIATED WITH DEVICE [None]
  - INJECTION SITE CELLULITIS [None]
  - LYMPHOEDEMA [None]
  - TINNITUS [None]
  - GAIT DISTURBANCE [None]
  - STAPHYLOCOCCAL ABSCESS [None]
